FAERS Safety Report 6719789-1 (Version None)
Quarter: 2010Q2

REPORT INFORMATION
  Report Type: 
  Country: None (occurrence: None)
  Receive Date: 20100511
  Receipt Date: 20100430
  Transmission Date: 20101027
  Serious: Yes (Hospitalization)
  Sender: FDA-Public Use
  Company Number: B0651980A

PATIENT
  Age: 66 Year
  Sex: Male

DRUGS (7)
  1. TRIAMTERENE AND HYDROCHLOROTHIAZIDE [Suspect]
     Route: 065
  2. TOLTERODINE [Concomitant]
     Route: 065
  3. TARTRATE [Concomitant]
     Route: 065
  4. LISINOPRIL [Concomitant]
     Route: 065
  5. SIMVASTATIN [Concomitant]
     Route: 065
  6. BUPROPION HCL [Concomitant]
     Route: 065
  7. OXYBUTYNIN [Concomitant]
     Route: 065

REACTIONS (11)
  - ASTHENIA [None]
  - BLOOD CHROMIUM INCREASED [None]
  - BLOOD UREA INCREASED [None]
  - CONFUSIONAL STATE [None]
  - HYPERKALAEMIA [None]
  - NEPHROLITHIASIS [None]
  - NEUROPATHY PERIPHERAL [None]
  - RENAL TUBULAR NECROSIS [None]
  - TREMOR [None]
  - URINE OUTPUT DECREASED [None]
  - URINE SODIUM INCREASED [None]
